FAERS Safety Report 11623575 (Version 1)
Quarter: 2015Q4

REPORT INFORMATION
  Report Type: Spontaneous
  Country: US (occurrence: None)
  Receive Date: 20151009
  Receipt Date: 20151009
  Transmission Date: 20160304
  Serious: No
  Sender: FDA-Public Use
  Company Number: None

PATIENT
  Age: 65 Year
  Sex: Female
  Weight: 78.93 kg

DRUGS (11)
  1. CONDROITIN [Concomitant]
  2. NAPROXIN [Concomitant]
     Active Substance: NAPROXEN
  3. METOPROLOL [Concomitant]
     Active Substance: METOPROLOL
  4. FISH OIL [Concomitant]
     Active Substance: FISH OIL
  5. TAMOXIFEN [Concomitant]
     Active Substance: TAMOXIFEN
  6. MSM [Concomitant]
     Active Substance: DIMETHYL SULFONE
  7. NAPROXEN. [Suspect]
     Active Substance: NAPROXEN
     Indication: RHEUMATOID ARTHRITIS
     Dosage: 2 A DAY?OVER A YEAR
     Route: 048
  8. NAPROXEN. [Suspect]
     Active Substance: NAPROXEN
     Indication: PAIN
     Dosage: 2 A DAY?OVER A YEAR
     Route: 048
  9. HYDROXYCHLOROQUINE [Concomitant]
     Active Substance: HYDROXYCHLOROQUINE
  10. PREDNISONE. [Concomitant]
     Active Substance: PREDNISONE
  11. MULTIVITAMIN [Concomitant]
     Active Substance: VITAMINS

REACTIONS (4)
  - Gait disturbance [None]
  - Muscle spasms [None]
  - Palpitations [None]
  - Pain [None]

NARRATIVE: CASE EVENT DATE: 20151008
